FAERS Safety Report 15523206 (Version 1)
Quarter: 2018Q4

REPORT INFORMATION
  Report Type: Spontaneous
  Country: BR (occurrence: BR)
  Receive Date: 20181018
  Receipt Date: 20181018
  Transmission Date: 20190205
  Serious: Yes (Other)
  Sender: FDA-Public Use
  Company Number: BR-ABBVIE-18K-020-2482090-00

PATIENT
  Age: 41 Year
  Sex: Female
  Weight: 46 kg

DRUGS (5)
  1. HUMIRA [Suspect]
     Active Substance: ADALIMUMAB
     Route: 058
     Dates: start: 201203
  2. HUMIRA [Suspect]
     Active Substance: ADALIMUMAB
     Indication: CROHN^S DISEASE
     Dosage: WEEK 0 LOADING DOSE
     Route: 058
     Dates: start: 20120301, end: 20120301
  3. HUMIRA [Suspect]
     Active Substance: ADALIMUMAB
     Dosage: WEEK 2 LOADING DOSE
     Route: 058
     Dates: start: 201203, end: 201203
  4. MESALAZINE [Concomitant]
     Active Substance: MESALAMINE
     Indication: CROHN^S DISEASE
     Dates: start: 2012, end: 201803
  5. AZATHIOPRINE. [Concomitant]
     Active Substance: AZATHIOPRINE
     Indication: CROHN^S DISEASE
     Dates: start: 2012

REACTIONS (6)
  - Gastrointestinal disorder [Unknown]
  - Laboratory test abnormal [Unknown]
  - Intestinal obstruction [Unknown]
  - Anxiety [Unknown]
  - Crohn^s disease [Unknown]
  - Rectal ulcer [Not Recovered/Not Resolved]

NARRATIVE: CASE EVENT DATE: 201808
